FAERS Safety Report 9928128 (Version 1)
Quarter: 2014Q1

REPORT INFORMATION
  Report Type: Spontaneous
  Country: US (occurrence: None)
  Receive Date: 20140226
  Receipt Date: 20140226
  Transmission Date: 20141002
  Serious: Yes (Life-Threatening, Hospitalization)
  Sender: FDA-Public Use
  Company Number: None

PATIENT
  Age: 53 Year
  Sex: Male
  Weight: 86.18 kg

DRUGS (1)
  1. BACTRIM [Suspect]
     Indication: ARTHROPOD BITE
     Route: 048
     Dates: start: 20140128, end: 20140208

REACTIONS (2)
  - Pharyngeal oedema [None]
  - Skin discolouration [None]
